FAERS Safety Report 22192458 (Version 1)
Quarter: 2023Q2

REPORT INFORMATION
  Report Type: Spontaneous
  Country: US (occurrence: US)
  Receive Date: 20230410
  Receipt Date: 20230410
  Transmission Date: 20230721
  Serious: No
  Sender: FDA-Public Use
  Company Number: US-Cardinal Health 414-CAHLYMPH-AE-22-46

PATIENT
  Age: 70 Year
  Sex: Female
  Weight: 72.1 kg

DRUGS (1)
  1. LYMPHOSEEK [Suspect]
     Active Substance: TECHNETIUM TC-99M TILMANOCEPT
     Indication: Lymphatic mapping
     Dosage: BUFFER MANUFACTURER LOT 401452 EXP 11/2023
     Route: 023
     Dates: start: 20221216, end: 20221216

REACTIONS (2)
  - Drug ineffective [Recovered/Resolved]
  - Injection site haemorrhage [Recovered/Resolved]

NARRATIVE: CASE EVENT DATE: 20221216
